FAERS Safety Report 7337325 (Version 3)
Quarter: 2013Q4

REPORT INFORMATION
  Report Type: Spontaneous
  Country: US (occurrence: US)
  Receive Date: 20100330
  Receipt Date: 20131206
  Transmission Date: 20140711
  Serious: Yes (Hospitalization, Other)
  Sender: FDA-Public Use
  Company Number: US-BAYER-201017562NA

PATIENT
  Age: 36 Year
  Sex: Female
  Weight: 90.7 kg

DRUGS (13)
  1. YAZ [Suspect]
     Indication: CONTRACEPTION
     Dosage: UNK
     Route: 048
  2. YASMIN [Suspect]
     Indication: CONTRACEPTION
     Dosage: UNK UNK, UNK
     Route: 048
     Dates: start: 2003, end: 200810
  3. OCELLA [Suspect]
     Indication: CONTRACEPTION
  4. INDOMETHACIN [Concomitant]
     Dosage: 25 MG, UNK
  5. LORTAB [Concomitant]
  6. BUDEPRION [Concomitant]
     Dosage: 300 MG, UNK
  7. ADVAIR [Concomitant]
  8. WELLBUTRIN XL [Concomitant]
     Dosage: 300 MG, UNK
  9. GABAPENTIN [Concomitant]
     Dosage: 300 MG, UNK
  10. SULFAMETHOXAZOLE W/TRIMETHOPRIM [Concomitant]
  11. ALBUTEROL INHALER [Concomitant]
  12. TYLENOL WITH CODEINE [Concomitant]
  13. TERCONAZOLE [Concomitant]
     Dosage: 80 MG, UNK
     Route: 067

REACTIONS (4)
  - Cholecystitis chronic [None]
  - Cholelithiasis [None]
  - Gallbladder non-functioning [Recovered/Resolved]
  - Organ failure [Recovered/Resolved]
